FAERS Safety Report 8969994 (Version 1)
Quarter: 2012Q4

REPORT INFORMATION
  Report Type: 
  Country: DE (occurrence: DE)
  Receive Date: 20121217
  Receipt Date: 20121217
  Transmission Date: 20130627
  Serious: Yes (Death)
  Sender: FDA-Public Use
  Company Number: DE-B.I. PHARMACEUTICALS,INC./RIDGEFIELD-2012-DE-03003DE

PATIENT
  Age: 69 Year
  Sex: Female

DRUGS (12)
  1. PRADAXA [Suspect]
     Indication: ATRIAL FIBRILLATION
     Dosage: 150 NR
  2. DIGIMERCK [Suspect]
     Indication: ATRIAL FIBRILLATION
  3. AZATHIOPRINE [Concomitant]
     Indication: POLYMYOSITIS
  4. JANUVIA [Concomitant]
     Indication: DIABETES MELLITUS
  5. PREDNISOLON [Concomitant]
     Indication: POLYMYOSITIS
  6. CANDESARTAN [Concomitant]
     Indication: CARDIOMYOPATHY
  7. TORASEMID [Concomitant]
     Indication: CARDIAC FAILURE
  8. BISOPROLOL [Concomitant]
     Indication: CARDIAC FAILURE
  9. METAMIZOL [Concomitant]
     Indication: PAIN
  10. L-THYROX [Concomitant]
     Indication: HYPOTHYROIDISM
  11. ALDENTRON [Concomitant]
     Indication: OSTEOPOROSIS
  12. IBUPROFEN [Concomitant]

REACTIONS (1)
  - Renal failure [Fatal]
